FAERS Safety Report 9688990 (Version 2)
Quarter: 2014Q2

REPORT INFORMATION
  Report Type: Spontaneous
  Country: FR (occurrence: FR)
  Receive Date: 20131114
  Receipt Date: 20140603
  Transmission Date: 20141212
  Serious: Yes (Hospitalization)
  Sender: FDA-Public Use
  Company Number: FR-VERTEX PHARMACEUTICALS INC-2013-011071

PATIENT
  Age: 61 Year
  Sex: Male
  Weight: 77 kg

DRUGS (8)
  1. INCIVO [Suspect]
     Indication: HEPATITIS C
     Dosage: 750 MG, TID
     Route: 048
     Dates: start: 20120416, end: 20120707
  2. PLAVIX [Suspect]
     Indication: ARRHYTHMIA
     Dosage: 75 MG, QD
     Route: 065
  3. PERINDOPRIL [Suspect]
     Indication: ISCHAEMIC CARDIOMYOPATHY
     Dosage: 10 MG, QD
     Route: 065
  4. COPEGUS [Concomitant]
     Indication: HEPATITIS C
     Dosage: 600 MG, BID
     Route: 065
     Dates: start: 20120416, end: 20130318
  5. PEGASYS [Concomitant]
     Indication: HEPATITIS C
     Route: 065
     Dates: start: 20120416, end: 20130318
  6. BISOCE [Concomitant]
     Indication: ARRHYTHMIA
     Dosage: 2.5 MG, QD
     Route: 065
  7. AMLODIPINE [Concomitant]
     Indication: MYOCARDIAL ISCHAEMIA
     Dosage: 10 MG, QD
     Route: 065
  8. NOVOMIX [Concomitant]
     Indication: DIABETES MELLITUS
     Dosage: UNK
     Route: 065

REACTIONS (7)
  - Gastrointestinal haemorrhage [Recovered/Resolved]
  - Malaise [Recovered/Resolved]
  - Melaena [Recovered/Resolved]
  - Telangiectasia [Recovered/Resolved]
  - Gamma-glutamyltransferase increased [Recovered/Resolved]
  - Thrombocytopenia [Recovered/Resolved]
  - Anaemia [Recovered/Resolved]
